FAERS Safety Report 21112748 (Version 2)
Quarter: 2022Q3

REPORT INFORMATION
  Report Type: Spontaneous
  Country: GB (occurrence: GB)
  Receive Date: 20220721
  Receipt Date: 20220817
  Transmission Date: 20221027
  Serious: Yes (Death, Other)
  Sender: FDA-Public Use
  Company Number: GB-DSJP-DSE-2022-123168

PATIENT
  Age: 55 Year
  Sex: Female
  Weight: 94.6 kg

DRUGS (2)
  1. ENHERTU [Suspect]
     Active Substance: FAM-TRASTUZUMAB DERUXTECAN-NXKI
     Indication: HER2 positive breast cancer
     Dosage: 500 MG, ONCE EVERY 3 WK
     Route: 042
     Dates: start: 20210519, end: 20211203
  2. ENHERTU [Suspect]
     Active Substance: FAM-TRASTUZUMAB DERUXTECAN-NXKI
     Indication: Breast cancer metastatic

REACTIONS (12)
  - Interstitial lung disease [Fatal]
  - Pulmonary fibrosis [Not Recovered/Not Resolved]
  - Respiratory failure [Not Recovered/Not Resolved]
  - Malaise [Not Recovered/Not Resolved]
  - Mouth ulceration [Not Recovered/Not Resolved]
  - Pain [Not Recovered/Not Resolved]
  - Influenza like illness [Not Recovered/Not Resolved]
  - Diarrhoea [Not Recovered/Not Resolved]
  - Pneumomediastinum [Recovered/Resolved]
  - Subcutaneous emphysema [Unknown]
  - Infection [Not Recovered/Not Resolved]
  - C-reactive protein increased [Unknown]

NARRATIVE: CASE EVENT DATE: 20211226
